FAERS Safety Report 4390176-7 (Version None)
Quarter: 2004Q3

REPORT INFORMATION
  Report Type: 
  Country: None (occurrence: None)
  Receive Date: 20040706
  Receipt Date: 20040621
  Transmission Date: 20050211
  Serious: Yes (Death)
  Sender: FDA-Public Use
  Company Number: GB-GLAXOSMITHKLINE-B0336697A

PATIENT
  Age: 63 Year
  Sex: Male

DRUGS (3)
  1. SEROXAT [Suspect]
     Indication: DEPRESSION
     Dates: start: 20000301
  2. LOFEPRAMINE [Concomitant]
     Route: 065
     Dates: start: 20040501
  3. DIAZEPAM [Concomitant]
     Route: 065
     Dates: start: 20040501

REACTIONS (2)
  - COMPLETED SUICIDE [None]
  - SUICIDAL IDEATION [None]
